FAERS Safety Report 5594790-2 (Version None)
Quarter: 2008Q1

REPORT INFORMATION
  Report Type: 
  Country: None (occurrence: None)
  Receive Date: 20080117
  Receipt Date: 20080107
  Transmission Date: 20080703
  Serious: Yes (Death, Hospitalization)
  Sender: FDA-Public Use
  Company Number: B0455181A

PATIENT
  Age: 58 Year
  Sex: Male

DRUGS (1)
  1. LAMIVUDINE [Suspect]
     Indication: HEPATITIS B
     Route: 065
     Dates: start: 20010801

REACTIONS (12)
  - ALANINE AMINOTRANSFERASE INCREASED [None]
  - ASCITES [None]
  - ASPARTATE AMINOTRANSFERASE INCREASED [None]
  - BLOOD BILIRUBIN INCREASED [None]
  - DRUG INEFFECTIVE [None]
  - DRUG RESISTANCE [None]
  - EMBOLISM [None]
  - ENCEPHALOPATHY [None]
  - GENE MUTATION IDENTIFICATION TEST POSITIVE [None]
  - HEPATIC FAILURE [None]
  - HEPATITIS B [None]
  - RENAL FAILURE [None]
